FAERS Safety Report 10224185 (Version 1)
Quarter: 2014Q2

REPORT INFORMATION
  Report Type: Spontaneous
  Country: IT (occurrence: IT)
  Receive Date: 20140609
  Receipt Date: 20140609
  Transmission Date: 20141212
  Serious: Yes (Other)
  Sender: FDA-Public Use
  Company Number: PHHY2014IT069814

PATIENT
  Age: 45 Year
  Sex: Female

DRUGS (5)
  1. VOLTAREN [Suspect]
     Indication: BACK PAIN
     Dosage: 1 DF, DAILY
     Route: 030
     Dates: start: 20131212, end: 20131215
  2. VOLTFAST [Suspect]
     Indication: BACK PAIN
     Dosage: 1 DF, TOTAL
     Route: 049
     Dates: start: 20131215, end: 20131215
  3. CONTRAMAL [Suspect]
     Indication: BACK PAIN
     Dosage: 1 DF, TOTAL
     Route: 048
     Dates: start: 20131215, end: 20131215
  4. ATENOLOL [Concomitant]
     Dosage: 25 MG, UNK
  5. MUSCORIL [Concomitant]
     Dosage: 1 DF, UNK
     Route: 030
     Dates: start: 20131212, end: 20131215

REACTIONS (3)
  - Confusional state [Recovered/Resolved]
  - Malaise [Recovered/Resolved]
  - Hypertension [Recovered/Resolved]
